FAERS Safety Report 23752371 (Version 3)
Quarter: 2024Q2

REPORT INFORMATION
  Report Type: Spontaneous
  Country: US (occurrence: US)
  Receive Date: 20240417
  Receipt Date: 20240605
  Transmission Date: 20240716
  Serious: Yes (Hospitalization)
  Sender: FDA-Public Use
  Company Number: US-DSJP-DSU-2024-117047

PATIENT
  Sex: Male

DRUGS (2)
  1. VANFLYTA [Suspect]
     Active Substance: QUIZARTINIB DIHYDROCHLORIDE
     Indication: Acute myeloid leukaemia
     Dosage: 35.4 MG, QD ON DAYS 6-19 OF A 28 DAY CYCLE
     Route: 048
  2. VANFLYTA [Suspect]
     Active Substance: QUIZARTINIB DIHYDROCHLORIDE
     Dosage: 35.4 MG, QD ON DAYS 6-19 OF A 28 DAY CYCLE
     Route: 048

REACTIONS (6)
  - Pyrexia [Recovering/Resolving]
  - Oropharyngeal pain [Recovering/Resolving]
  - Full blood count decreased [Recovered/Resolved]
  - Epistaxis [Recovering/Resolving]
  - Headache [Recovering/Resolving]
  - Product dose omission issue [Not Recovered/Not Resolved]
